FAERS Safety Report 17826561 (Version 1)
Quarter: 2020Q2

REPORT INFORMATION
  Report Type: Spontaneous
  Country: RU (occurrence: RU)
  Receive Date: 20200526
  Receipt Date: 20200526
  Transmission Date: 20200714
  Serious: Yes (Death, Other)
  Sender: FDA-Public Use
  Company Number: RU-BRISTOL-MYERS SQUIBB COMPANY-BMS-2020-041114

PATIENT

DRUGS (2)
  1. ABATACEPT [Suspect]
     Active Substance: ABATACEPT
     Indication: IMMUNOSUPPRESSION
     Dosage: 10 MILLIGRAM/KILOGRAM
     Route: 065
     Dates: start: 201701
  2. TOCILIZUMAB. [Suspect]
     Active Substance: TOCILIZUMAB
     Indication: IMMUNOSUPPRESSION
     Dosage: 8 MILLIGRAM/KILOGRAM
     Route: 065
     Dates: start: 201701

REACTIONS (2)
  - Intentional product use issue [Unknown]
  - Pneumonia cytomegaloviral [Fatal]
